FAERS Safety Report 8848912 (Version 1)
Quarter: 2012Q4

REPORT INFORMATION
  Report Type: Spontaneous
  Country: US (occurrence: None)
  Receive Date: 20121015
  Receipt Date: 20121015
  Transmission Date: 20130627
  Serious: Yes (Hospitalization)
  Sender: FDA-Public Use
  Company Number: DSA_60063_2012

PATIENT
  Sex: Female

DRUGS (2)
  1. WELLBUTRIN [Suspect]
     Indication: BIPOLAR DISORDER
     Route: 048
     Dates: start: 201209, end: 2012
  2. LAMICTAL [Suspect]
     Indication: BIPOLAR DISORDER
     Route: 048
     Dates: start: 201208, end: 201209

REACTIONS (11)
  - Hepatic function abnormal [None]
  - Back pain [None]
  - Abdominal pain [None]
  - Nausea [None]
  - Fatigue [None]
  - Swelling face [None]
  - Local swelling [None]
  - Jaundice [None]
  - Liver disorder [None]
  - Oral mucosal blistering [None]
  - Rash generalised [None]
